FAERS Safety Report 12147749 (Version 1)
Quarter: 2016Q1

REPORT INFORMATION
  Report Type: Spontaneous
  Country: PL (occurrence: PL)
  Receive Date: 20160304
  Receipt Date: 20160304
  Transmission Date: 20160526
  Serious: Yes (Death)
  Sender: FDA-Public Use
  Company Number: PL-WATSON-2016-04164

PATIENT
  Age: 31 Year
  Sex: Male

DRUGS (1)
  1. DEXTROAMPHETAMINE SAC/SLF, AMPHETAMINE ASP/SLF (MIXED SALTS)(WATSON) [Suspect]
     Active Substance: AMPHETAMINE ASPARTATE\AMPHETAMINE SULFATE\DEXTROAMPHETAMINE SACCHARATE\DEXTROAMPHETAMINE SULFATE
     Indication: DRUG ABUSE
     Dosage: UNK
     Route: 065

REACTIONS (13)
  - Hyperthermia [Fatal]
  - Drug abuse [Fatal]
  - Seizure [Fatal]
  - Toxicity to various agents [Fatal]
  - Leukocytosis [Fatal]
  - Sinus tachycardia [Fatal]
  - Coma [Fatal]
  - Rhabdomyolysis [Fatal]
  - Multiple organ dysfunction syndrome [Fatal]
  - Cerebellar haemorrhage [Fatal]
  - Hepatic failure [Fatal]
  - Acute kidney injury [Fatal]
  - Acute respiratory failure [Fatal]
